FAERS Safety Report 13110022 (Version 1)
Quarter: 2017Q1

REPORT INFORMATION
  Report Type: Spontaneous
  Country: US (occurrence: US)
  Receive Date: 20170112
  Receipt Date: 20170112
  Transmission Date: 20170428
  Serious: No
  Sender: FDA-Public Use
  Company Number: US-ROCHE-1101357

PATIENT
  Age: 42 Year
  Sex: Male

DRUGS (7)
  1. LIDOCAINE. [Concomitant]
     Active Substance: LIDOCAINE
     Dosage: BOLUS DOSE
     Route: 042
  2. LIDOCAINE. [Concomitant]
     Active Substance: LIDOCAINE
     Dosage: 1 MG/MINUTE
     Route: 065
  3. NITROGLYCERINE DRIP [Concomitant]
  4. MS [Concomitant]
     Active Substance: MORPHINE SULFATE
  5. ACTIVASE [Suspect]
     Active Substance: ALTEPLASE
     Indication: ACUTE MYOCARDIAL INFARCTION
     Route: 065
     Dates: start: 19900411
  6. DARVON [Concomitant]
     Active Substance: PROPOXYPHENE HYDROCHLORIDE
  7. ATROPINE. [Concomitant]
     Active Substance: ATROPINE
     Route: 042

REACTIONS (1)
  - Extrasystoles [Unknown]
